FAERS Safety Report 5562900-9 (Version None)
Quarter: 2007Q4

REPORT INFORMATION
  Report Type: 
  Country: None (occurrence: None)
  Receive Date: 20071217
  Receipt Date: 20071211
  Transmission Date: 20080405
  Serious: No
  Sender: FDA-Public Use
  Company Number: US-BOEHRINGER INGELHEIM PHARMACEUTICALS, INC.-2007-BP-25967BP

PATIENT
  Age: 75 Year
  Sex: Male

DRUGS (8)
  1. FLOMAX [Suspect]
     Route: 048
  2. OXYCODONE HCL [Suspect]
  3. ZAROXOLYN [Suspect]
  4. PREDNISONE [Suspect]
  5. POTASSIUM CHLORIDE [Suspect]
  6. PAXIL [Suspect]
  7. OXAZEPAM [Suspect]
  8. FUROSEMIDE [Suspect]

REACTIONS (2)
  - LOSS OF CONSCIOUSNESS [None]
  - ROAD TRAFFIC ACCIDENT [None]
